FAERS Safety Report 7976355-8 (Version None)
Quarter: 2011Q4

REPORT INFORMATION
  Report Type: 
  Country: None (occurrence: None)
  Receive Date: 20111213
  Receipt Date: 20111019
  Transmission Date: 20120403
  Serious: No
  Sender: FDA-Public Use
  Company Number: US-AMGEN-USASP2011049486

PATIENT
  Age: 82 Year
  Sex: Female

DRUGS (1)
  1. ENBREL [Suspect]
     Indication: RHEUMATOID ARTHRITIS
     Dosage: 50 MG, QWK
     Dates: start: 20110908

REACTIONS (14)
  - RASH [None]
  - INJECTION SITE WARMTH [None]
  - INJECTION SITE HAEMATOMA [None]
  - INJECTION SITE ERYTHEMA [None]
  - INJECTION SITE REACTION [None]
  - ACNE [None]
  - SWELLING FACE [None]
  - LOCAL SWELLING [None]
  - ARTHRITIS [None]
  - INJECTION SITE PAIN [None]
  - ERYTHEMA [None]
  - CYST [None]
  - ALOPECIA [None]
  - INJECTION SITE INDURATION [None]
